FAERS Safety Report 25535414 (Version 2)
Quarter: 2025Q3

REPORT INFORMATION
  Report Type: Spontaneous
  Country: AU (occurrence: AU)
  Receive Date: 20250709
  Receipt Date: 20250716
  Transmission Date: 20251021
  Serious: Yes (Hospitalization, Other)
  Sender: TEIKOKU
  Company Number: AU-GRUNENTHAL-2025-109724

PATIENT
  Age: 51 Year
  Sex: Female

DRUGS (1)
  1. LIDOCAINE [Suspect]
     Active Substance: LIDOCAINE
     Indication: Back disorder
     Route: 061

REACTIONS (5)
  - Cerebrovascular accident [Unknown]
  - Pain [Unknown]
  - Feeling hot [Unknown]
  - Burning sensation [Unknown]
  - Application site pruritus [Unknown]
